FAERS Safety Report 7425301-4 (Version None)
Quarter: 2011Q2

REPORT INFORMATION
  Report Type: 
  Country: None (occurrence: None)
  Receive Date: 20110420
  Receipt Date: 20100114
  Transmission Date: 20111010
  Serious: No
  Sender: FDA-Public Use
  Company Number: US-BAYER-201011487NA

PATIENT
  Age: 40 Year
  Sex: Female
  Weight: 71.655 kg

DRUGS (1)
  1. YAZ [Suspect]
     Indication: CONTRACEPTION
     Dosage: UNK
     Dates: start: 20091210

REACTIONS (2)
  - HEADACHE [None]
  - AMENORRHOEA [None]
